FAERS Safety Report 6544158-7 (Version None)
Quarter: 2010Q1

REPORT INFORMATION
  Report Type: 
  Country: None (occurrence: None)
  Receive Date: 20100120
  Receipt Date: 20091104
  Transmission Date: 20100710
  Serious: No
  Sender: FDA-Public Use
  Company Number: US-ALLERGAN-0915325US

PATIENT
  Age: 40 Year
  Sex: Female

DRUGS (2)
  1. PRED FORTE [Suspect]
     Indication: POSTOPERATIVE CARE
     Dosage: 1 GTT, QID
     Route: 047
     Dates: start: 20090416, end: 20090528
  2. XIBROM [Suspect]
     Indication: POSTOPERATIVE CARE
     Dosage: 1 GTT, BID
     Route: 047
     Dates: start: 20090416, end: 20090528

REACTIONS (2)
  - FOREIGN BODY SENSATION IN EYES [None]
  - VISION BLURRED [None]
